FAERS Safety Report 6687412-0 (Version None)
Quarter: 2010Q2

REPORT INFORMATION
  Report Type: 
  Country: None (occurrence: None)
  Receive Date: 20100416
  Receipt Date: 20100416
  Transmission Date: 20101027
  Serious: No
  Sender: FDA-Public Use
  Company Number: None

PATIENT
  Age: 78 Year
  Sex: Male
  Weight: 72.5755 kg

DRUGS (6)
  1. SIMVASTATIN [Suspect]
     Indication: BLOOD CHOLESTEROL INCREASED
     Dosage: 80 MG DAILY BUCCAL
     Route: 002
  2. METTOPROPOL [Concomitant]
  3. LISINOPRIL [Concomitant]
  4. AMLODIPINE [Concomitant]
  5. TAMLUSON [Concomitant]
  6. FINASTERIDE [Concomitant]

REACTIONS (4)
  - ASTHENIA [None]
  - INJECTION SITE PAIN [None]
  - SKIN DISCOLOURATION [None]
  - TENDON RUPTURE [None]
